FAERS Safety Report 6179799-2 (Version None)
Quarter: 2009Q2

REPORT INFORMATION
  Report Type: 
  Country: None (occurrence: None)
  Receive Date: 20090505
  Receipt Date: 20090423
  Transmission Date: 20091009
  Serious: Yes (Other)
  Sender: FDA-Public Use
  Company Number: AU-BRISTOL-MYERS SQUIBB COMPANY-14609218

PATIENT
  Age: 52 Year
  Sex: Male

DRUGS (9)
  1. EFAVIRENZ TABS [Suspect]
     Indication: HIV INFECTION
     Route: 048
  2. INDINIVIR SULFATE [Suspect]
     Indication: HIV INFECTION
     Route: 065
  3. AMPRENAVIR [Concomitant]
     Indication: ANTIRETROVIRAL THERAPY
  4. DIDANOSINE [Concomitant]
     Indication: ANTIRETROVIRAL THERAPY
  5. LAMIVUDINE [Concomitant]
     Indication: ANTIRETROVIRAL THERAPY
  6. LOPINAVIR [Concomitant]
     Indication: ANTIRETROVIRAL THERAPY
  7. STAVUDINE [Concomitant]
     Indication: ANTIRETROVIRAL THERAPY
  8. ZALCITABINE [Concomitant]
     Indication: ANTIRETROVIRAL THERAPY
  9. ZIDOVUDINE [Concomitant]
     Indication: ANTIRETROVIRAL THERAPY

REACTIONS (1)
  - DRUG INEFFECTIVE [None]
